FAERS Safety Report 7345343-7 (Version None)
Quarter: 2011Q1

REPORT INFORMATION
  Report Type: 
  Country: None (occurrence: None)
  Receive Date: 20110310
  Receipt Date: 20110226
  Transmission Date: 20110831
  Serious: Yes (Hospitalization)
  Sender: FDA-Public Use
  Company Number: CA-ELI_LILLY_AND_COMPANY-CA201103000183

PATIENT
  Age: 61 Year
  Sex: Female

DRUGS (16)
  1. HYDROMORPHONE HCL [Concomitant]
  2. VITAMIN D [Concomitant]
  3. PANTOLOC                           /01263202/ [Concomitant]
  4. GABAPENTIN [Concomitant]
  5. WARFARIN [Concomitant]
  6. TYLENOL                                 /SCH/ [Concomitant]
  7. FORTEO [Suspect]
     Indication: OSTEOPOROSIS
     Dosage: 20 UG, DAILY (1/D)
     Route: 058
     Dates: start: 20091203
  8. OXYBUTYNIN [Concomitant]
  9. ASCORBIC ACID [Concomitant]
  10. GRAVOL TAB [Concomitant]
  11. FOLIC ACID [Concomitant]
  12. LASIX [Concomitant]
  13. PREDNISONE [Concomitant]
  14. ADVAIR DISKUS 100/50 [Concomitant]
  15. MULTI-VITAMIN [Concomitant]
  16. OXAZEPAM [Concomitant]

REACTIONS (3)
  - WOUND [None]
  - CONSTIPATION [None]
  - PAIN IN EXTREMITY [None]
